FAERS Safety Report 9325101 (Version 2)
Quarter: 2013Q2

REPORT INFORMATION
  Report Type: Spontaneous
  Country: US (occurrence: None)
  Receive Date: 20130529
  Receipt Date: 20130603
  Transmission Date: 20140414
  Serious: Yes (Death, Hospitalization)
  Sender: FDA-Public Use
  Company Number: MC201300277

PATIENT
  Age: 56 Year
  Sex: Male

DRUGS (5)
  1. ANGIOMAX, ANGIOX (BIVALIRUDIN) INJECTION [Suspect]
     Indication: PERCUTANEOUS CORONARY INTERVENTION
     Route: 040
     Dates: start: 20130502
  2. BRILINTA [Concomitant]
  3. ASPIRIN (ACETYLSALICYLIC ACID) [Concomitant]
  4. LISINOPRIL (LISINOPRIL) [Concomitant]
  5. LIPITOR (ATORVASTATIN CALCIUM) [Concomitant]

REACTIONS (2)
  - Acute myocardial infarction [None]
  - Thrombosis in device [None]
